FAERS Safety Report 6749443-1 (Version None)
Quarter: 2010Q2

REPORT INFORMATION
  Report Type: 
  Country: None (occurrence: None)
  Receive Date: 20100601
  Receipt Date: 20100519
  Transmission Date: 20101027
  Serious: Yes (Congenital Anomaly)
  Sender: FDA-Public Use
  Company Number: US-ROCHE-705547

PATIENT

DRUGS (2)
  1. ZALCITABINE [Suspect]
     Indication: PROPHYLAXIS AGAINST HIV INFECTION
  2. LOPINAVIR/RITONAVIR [Suspect]
     Indication: PROPHYLAXIS AGAINST HIV INFECTION

REACTIONS (1)
  - DIAPHRAGMATIC HERNIA [None]
